FAERS Safety Report 9911954 (Version 2)
Quarter: 2014Q1

REPORT INFORMATION
  Report Type: Spontaneous
  Country: US (occurrence: US)
  Receive Date: 20140219
  Receipt Date: 20140219
  Transmission Date: 20141002
  Serious: No
  Sender: FDA-Public Use
  Company Number: US-MYLANLABS-2013S1024029

PATIENT
  Age: 47 Year
  Sex: Male

DRUGS (3)
  1. EPIPEN 2-PAK [Suspect]
     Indication: ANAPHYLACTIC REACTION
     Dates: start: 20131007
  2. BYSTOLIC [Concomitant]
     Route: 048
  3. SINGULAIR [Concomitant]
     Route: 048

REACTIONS (3)
  - Accidental exposure to product [Recovered/Resolved]
  - Injury associated with device [Not Recovered/Not Resolved]
  - Device malfunction [Recovered/Resolved]
